FAERS Safety Report 8966347 (Version 2)
Quarter: 2012Q4

REPORT INFORMATION
  Report Type: 
  Country: IT (occurrence: IT)
  Receive Date: 20121217
  Receipt Date: 20121224
  Transmission Date: 20130627
  Serious: Yes (Other)
  Sender: FDA-Public Use
  Company Number: PHHY2012IT115505

PATIENT
  Age: 44 Year
  Sex: Male

DRUGS (1)
  1. VOLTFAST [Suspect]
     Indication: BACK PAIN
     Dosage: 100 mg total
     Route: 048
     Dates: start: 20121129, end: 20121129

REACTIONS (1)
  - Bronchospasm [Recovering/Resolving]
